FAERS Safety Report 12886046 (Version 10)
Quarter: 2019Q2

REPORT INFORMATION
  Report Type: Spontaneous
  Country: US (occurrence: US)
  Receive Date: 20161026
  Receipt Date: 20190418
  Transmission Date: 20190711
  Serious: Yes (Hospitalization, Disabling)
  Sender: FDA-Public Use
  Company Number: US-ACTELION-A-US2016-143609

PATIENT
  Age: 66 Year
  Sex: Female

DRUGS (3)
  1. XARELTO [Concomitant]
     Active Substance: RIVAROXABAN
     Dosage: UNK
  2. ADEMPAS [Concomitant]
     Active Substance: RIOCIGUAT
     Dosage: UNK
     Dates: start: 20171123
  3. OPSUMIT [Suspect]
     Active Substance: MACITENTAN
     Indication: PULMONARY ARTERIAL HYPERTENSION
     Dosage: 10 MG, QD
     Route: 048
     Dates: start: 20160929

REACTIONS (21)
  - Sleep disorder [Not Recovered/Not Resolved]
  - Dizziness [Unknown]
  - Hypertension [Unknown]
  - Fatigue [Unknown]
  - Vomiting [Unknown]
  - Syncope [Unknown]
  - Decreased appetite [Unknown]
  - Nasal congestion [Unknown]
  - Cough [Unknown]
  - Influenza like illness [Unknown]
  - Headache [Not Recovered/Not Resolved]
  - Dizziness postural [Not Recovered/Not Resolved]
  - Throat clearing [Not Recovered/Not Resolved]
  - Asthenia [Unknown]
  - Abdominal pain upper [Not Recovered/Not Resolved]
  - Pyrexia [Not Recovered/Not Resolved]
  - Catheterisation cardiac [Unknown]
  - Pulmonary thrombosis [Unknown]
  - Nausea [Unknown]
  - Somnolence [Unknown]
  - Oxygen consumption increased [Unknown]

NARRATIVE: CASE EVENT DATE: 201610
